FAERS Safety Report 8596427-7 (Version None)
Quarter: 2012Q3

REPORT INFORMATION
  Report Type: 
  Country: None (occurrence: None)
  Receive Date: 20120806
  Receipt Date: 20120806
  Transmission Date: 20120928
  Serious: Yes (Other)
  Sender: FDA-Public Use
  Company Number: None

PATIENT
  Sex: Female

DRUGS (1)
  1. CIMZIA [Suspect]
     Indication: ARTHRITIS
     Dosage: 400MG ONCE A MONTH IM
     Route: 030
     Dates: start: 20120101, end: 20120401

REACTIONS (3)
  - DYSPNOEA [None]
  - MUSCULAR WEAKNESS [None]
  - GAIT DISTURBANCE [None]
